FAERS Safety Report 6903271-2 (Version None)
Quarter: 2010Q3

REPORT INFORMATION
  Report Type: 
  Country: None (occurrence: None)
  Receive Date: 20100803
  Receipt Date: 20081027
  Transmission Date: 20110219
  Serious: No
  Sender: FDA-Public Use
  Company Number: US-PFIZER INC-2008047613

PATIENT
  Sex: Male
  Weight: 117 kg

DRUGS (7)
  1. LYRICA [Suspect]
     Indication: NEURALGIA
     Route: 048
     Dates: start: 20060101
  2. PAXIL [Concomitant]
  3. TENORMIN [Concomitant]
  4. PRILOSEC [Concomitant]
  5. ALLOPURINOL [Concomitant]
  6. AMBIEN [Concomitant]
  7. NEURONTIN [Concomitant]

REACTIONS (1)
  - WEIGHT INCREASED [None]
